FAERS Safety Report 11370965 (Version 1)
Quarter: 2015Q3

REPORT INFORMATION
  Report Type: Spontaneous
  Country: FR (occurrence: FR)
  Receive Date: 20150812
  Receipt Date: 20150812
  Transmission Date: 20151125
  Serious: Yes (Hospitalization)
  Sender: FDA-Public Use
  Company Number: FR-BRISTOL-MYERS SQUIBB COMPANY-14744718

PATIENT
  Age: 27 Year
  Sex: Female

DRUGS (2)
  1. COUMADIN [Suspect]
     Active Substance: WARFARIN SODIUM
     Indication: PRODUCT USED FOR UNKNOWN INDICATION
     Dosage: INTERRUPTED ON 29-JUL-2009 AND RESTARTED ON 01-AUG-2009
     Route: 048
     Dates: start: 20090612
  2. NON-MEDICINAL PRODUCT [Concomitant]
     Active Substance: UNSPECIFIED INGREDIENT
     Indication: PRODUCT USED FOR UNKNOWN INDICATION
     Dosage: ALMONDS
     Route: 065
     Dates: start: 20090728

REACTIONS (3)
  - Metrorrhagia [Recovered/Resolved]
  - International normalised ratio increased [Recovered/Resolved]
  - Haematoma [Recovered/Resolved]

NARRATIVE: CASE EVENT DATE: 20090729
